FAERS Safety Report 16946879 (Version 1)
Quarter: 2019Q4

REPORT INFORMATION
  Report Type: Spontaneous
  Country: CA (occurrence: CA)
  Receive Date: 20191022
  Receipt Date: 20191022
  Transmission Date: 20200122
  Serious: Yes (Hospitalization)
  Sender: FDA-Public Use
  Company Number: CA-TEVA-2019-CA-1124645

PATIENT
  Age: 14 Year
  Sex: Male
  Weight: 52 kg

DRUGS (12)
  1. ASPARAGINASE (E.COLI) [Concomitant]
     Active Substance: ASPARAGINASE
     Indication: ACUTE LYMPHOCYTIC LEUKAEMIA
     Route: 042
  2. CYCLOPHOSPHAMIDE. [Concomitant]
     Active Substance: CYCLOPHOSPHAMIDE
  3. CYTARABINE INJECTION [Concomitant]
     Active Substance: CYTARABINE
  4. MERCAPTOPURINE. [Concomitant]
     Active Substance: MERCAPTOPURINE
  5. METHOTREXATE. [Concomitant]
     Active Substance: METHOTREXATE
  6. VINCRISTINE SULFATE. [Suspect]
     Active Substance: VINCRISTINE SULFATE
     Route: 042
  7. METHYLPREDNISOLONE NOS [Concomitant]
     Active Substance: METHYLPREDNISOLONE
  8. ETOPOSIDE. [Concomitant]
     Active Substance: ETOPOSIDE
  9. PREDNISONE. [Concomitant]
     Active Substance: PREDNISONE
  10. DOXORUBICIN LIPOSOMAL [Concomitant]
     Active Substance: DOXORUBICIN
  11. DEXAMETHASONE. [Concomitant]
     Active Substance: DEXAMETHASONE
  12. PEG-L-ASPARAGINASE [Concomitant]
     Active Substance: PEGASPARGASE

REACTIONS (6)
  - Neuropathy peripheral [Unknown]
  - Neck pain [Unknown]
  - Pain in extremity [Unknown]
  - Back pain [Unknown]
  - Muscular weakness [Unknown]
  - Arthralgia [Unknown]
